FAERS Safety Report 5717486-2 (Version None)
Quarter: 2008Q2

REPORT INFORMATION
  Report Type: 
  Country: None (occurrence: None)
  Receive Date: 20080425
  Receipt Date: 20080417
  Transmission Date: 20081010
  Serious: Yes (Death)
  Sender: FDA-Public Use
  Company Number: IT-BAYER-200816489GPV

PATIENT
  Age: 14 Year
  Sex: Female

DRUGS (16)
  1. FLUDARA [Suspect]
     Indication: ALLOGENIC BONE MARROW TRANSPLANTATION THERAPY
     Dosage: UNIT DOSE: 50 MG
     Route: 042
     Dates: start: 20080226, end: 20080301
  2. THYMOGLOBULIN [Suspect]
     Indication: ALLOGENIC BONE MARROW TRANSPLANTATION THERAPY
     Dosage: UNIT DOSE: 25 MG
     Route: 042
     Dates: start: 20080228, end: 20080302
  3. TREOSULFAN INJECTION (TREOSULFAN) [Suspect]
     Indication: DRUG USE FOR UNKNOWN INDICATION
     Dosage: UNIT DOSE: 21 G
     Route: 042
     Dates: start: 20080227, end: 20080229
  4. CARBAMAZEPINE [Concomitant]
     Route: 048
     Dates: start: 20080225, end: 20080303
  5. TRIMETOPRIM + SULFAMETHOXAZOLE [Concomitant]
     Route: 048
     Dates: start: 20080225, end: 20080302
  6. DEFIBROTIDE [Concomitant]
     Route: 042
     Dates: start: 20080226, end: 20080310
  7. MORPHINE [Concomitant]
     Dates: start: 20080306, end: 20080309
  8. VORICONAZOLE [Concomitant]
     Route: 048
     Dates: start: 20071206, end: 20080308
  9. CYCLOSPORINE [Concomitant]
     Route: 042
     Dates: start: 20080226, end: 20080308
  10. CAPTOPRIL [Concomitant]
     Route: 048
     Dates: start: 20071221, end: 20080308
  11. MEROPENEM [Concomitant]
     Route: 042
     Dates: start: 20080307, end: 20080308
  12. ACYCLOVIR [Concomitant]
     Route: 042
     Dates: start: 20080227, end: 20080308
  13. VANCOMYCIN [Concomitant]
     Route: 042
     Dates: start: 20080227, end: 20080308
  14. FUROSEMIDE [Concomitant]
  15. INSULIN [Concomitant]
  16. DOBUTAMINE HCL [Concomitant]

REACTIONS (1)
  - CARDIAC FAILURE [None]
